FAERS Safety Report 8478982-0 (Version None)
Quarter: 2012Q2

REPORT INFORMATION
  Report Type: 
  Country: None (occurrence: None)
  Receive Date: 20120629
  Receipt Date: 20120626
  Transmission Date: 20120825
  Serious: Yes (Hospitalization, Other)
  Sender: FDA-Public Use
  Company Number: US-MERCK-1110USA01997

PATIENT
  Age: 67 Year
  Sex: Female
  Weight: 82 kg

DRUGS (3)
  1. FOSAMAX [Suspect]
     Indication: OSTEOPOROSIS
     Route: 048
     Dates: start: 20010101
  2. FOSAMAX [Suspect]
     Route: 048
     Dates: start: 20080601, end: 20080801
  3. ALENDRONATE SODIUM [Suspect]
     Indication: OSTEOPOROSIS
     Route: 048
     Dates: start: 20080901, end: 20090501

REACTIONS (28)
  - ADVERSE DRUG REACTION [None]
  - HYPOMAGNESAEMIA [None]
  - ARTHRALGIA [None]
  - BLOOD PRESSURE INCREASED [None]
  - BREAST CYST [None]
  - NAUSEA [None]
  - HYPOTHYROIDISM [None]
  - DRUG INEFFECTIVE [None]
  - OSTEOARTHRITIS [None]
  - NEUROPATHY PERIPHERAL [None]
  - ISCHAEMIA [None]
  - PAIN IN EXTREMITY [None]
  - DEPRESSION [None]
  - GAIT DISTURBANCE [None]
  - RENAL FAILURE CHRONIC [None]
  - DYSSTASIA [None]
  - FEMUR FRACTURE [None]
  - ANXIETY DISORDER [None]
  - BLOOD CHOLESTEROL INCREASED [None]
  - OEDEMA [None]
  - MALIGNANT HYPERTENSION [None]
  - BALANCE DISORDER [None]
  - FEAR OF FALLING [None]
  - SLEEP DISORDER [None]
  - ADVERSE EVENT [None]
  - HYPERLIPIDAEMIA [None]
  - URINARY TRACT INFECTION [None]
  - DIZZINESS [None]
